FAERS Safety Report 6631505-0 (Version None)
Quarter: 2010Q1

REPORT INFORMATION
  Report Type: 
  Country: None (occurrence: None)
  Receive Date: 20100312
  Receipt Date: 20100302
  Transmission Date: 20100710
  Serious: Yes (Hospitalization)
  Sender: FDA-Public Use
  Company Number: US-ALEXION-A201000211

PATIENT
  Sex: Female

DRUGS (11)
  1. SOLIRIS [Suspect]
     Indication: PAROXYSMAL NOCTURNAL HAEMOGLOBINURIA
     Dosage: 600 MG, QW
     Route: 042
     Dates: start: 20091021, end: 20091111
  2. SOLIRIS [Suspect]
     Dosage: 900 MG, Q2W
     Route: 042
     Dates: start: 20091118
  3. ARANESP [Concomitant]
  4. DILANTIN [Concomitant]
     Dosage: 100 MG, BID
     Route: 048
  5. ZOLOFT [Concomitant]
     Dosage: 25 MG, QD
     Route: 048
  6. VITAMIN C                          /00008001/ [Concomitant]
     Dosage: 1 TAB, QD
     Route: 048
  7. FOLATE [Concomitant]
     Dosage: 1 MG, QD
     Route: 048
  8. VITAMIN A [Concomitant]
     Dosage: QW
     Route: 048
  9. CORGARD [Concomitant]
     Dosage: 20 MG, QD
     Route: 048
  10. EVISTA                             /01303201/ [Concomitant]
     Dosage: 60 MG, QD
     Route: 048
  11. LISINOPRIL [Concomitant]
     Dosage: 30 MG, QD
     Route: 048

REACTIONS (1)
  - UPPER RESPIRATORY TRACT INFECTION [None]
